FAERS Safety Report 24004079 (Version 2)
Quarter: 2024Q2

REPORT INFORMATION
  Report Type: Spontaneous
  Country: US (occurrence: US)
  Receive Date: 20240624
  Receipt Date: 20240627
  Transmission Date: 20240716
  Serious: Yes (Hospitalization)
  Sender: FDA-Public Use
  Company Number: US-BAUSCH-BL-2024-009449

PATIENT
  Age: 43 Year
  Sex: Female

DRUGS (1)
  1. METFORMIN [Suspect]
     Active Substance: METFORMIN HYDROCHLORIDE
     Indication: Product used for unknown indication
     Dosage: 360 TABLETS OF METFORMIN
     Route: 048

REACTIONS (4)
  - Renal impairment [Recovering/Resolving]
  - Hypoglycaemia [Unknown]
  - Lactic acidosis [Recovering/Resolving]
  - Intentional overdose [Unknown]
